FAERS Safety Report 21977248 (Version 2)
Quarter: 2023Q1

REPORT INFORMATION
  Report Type: Spontaneous
  Country: BR (occurrence: BR)
  Receive Date: 20230210
  Receipt Date: 20230215
  Transmission Date: 20230417
  Serious: Yes (Death, Disabling, Other)
  Sender: FDA-Public Use
  Company Number: BR-MYLANLABS-2023M1012963

PATIENT
  Age: 83 Year
  Sex: Female

DRUGS (20)
  1. ALPRAZOLAM [Interacting]
     Active Substance: ALPRAZOLAM
     Indication: Anxiety
     Dosage: 0.5 MILLIGRAM (ONCE)
     Route: 048
     Dates: start: 20230128, end: 20230128
  2. MORPHINE SULFATE [Interacting]
     Active Substance: MORPHINE SULFATE
     Dosage: 1 MILLIGRAM ,PRN(IF NEEDED)
     Route: 042
     Dates: end: 20230131
  3. MORPHINE SULFATE [Interacting]
     Active Substance: MORPHINE SULFATE
     Dosage: 1 MILLIGRAM, BID
     Route: 042
  4. NEXIUM [Concomitant]
     Active Substance: ESOMEPRAZOLE MAGNESIUM
     Dosage: 40 MILLIGRAM, BID
     Route: 042
  5. ASPIRIN [Concomitant]
     Active Substance: ASPIRIN
     Dosage: 100 MILLIGRAM, QD
     Route: 048
  6. PURAN [Concomitant]
     Active Substance: LEVOTHYROXINE SODIUM
     Dosage: 1 DOSAGE FORM, QD
     Route: 048
  7. PURAN [Concomitant]
     Active Substance: LEVOTHYROXINE SODIUM
     Dosage: 1 DOSAGE FORM, QD
     Route: 048
  8. CEFTRIONA [Concomitant]
     Dosage: 1000 MILLIGRAM, BID
     Route: 042
  9. MOTILIUM [Concomitant]
     Active Substance: DOMPERIDONE
     Dosage: 10 MILLIGRAM
     Route: 048
  10. ENOXAPARIN SODIUM [Concomitant]
     Active Substance: ENOXAPARIN SODIUM
     Dosage: 40 MILLIGRAM, QD
     Route: 058
  11. LIPITOR [Concomitant]
     Active Substance: ATORVASTATIN CALCIUM
     Dosage: 40 MILLIGRAM, HS
     Route: 048
  12. CYCLOBENZAPRINE [Concomitant]
     Active Substance: CYCLOBENZAPRINE
     Dosage: 5 MILLIGRAM, HS
     Route: 048
  13. MEBEVERINE [Concomitant]
     Active Substance: MEBEVERINE
     Dosage: 200 MILLIGRAM, BID
     Route: 048
  14. NOVALGINA [Concomitant]
     Active Substance: ACETAMINOPHEN\CAFFEINE
     Dosage: 2000 MILLIGRAM, BID
     Route: 042
  15. Xylestesin [Concomitant]
     Dosage: 10 MILLILITER, QD
     Route: 042
  16. LYRICA [Concomitant]
     Active Substance: PREGABALIN
     Dosage: 75 MILLIGRAM, BID
     Route: 048
  17. MORPHINE HYDROCHLORIDE [Concomitant]
     Active Substance: MORPHINE HYDROCHLORIDE
     Dosage: UNK
     Route: 065
     Dates: end: 20230131
  18. SALINE [Concomitant]
     Active Substance: SODIUM CHLORIDE
     Dosage: UNK (0.9% 10ML)
     Route: 065
  19. SUCRAFILM [Concomitant]
     Dosage: UNK
     Route: 065
  20. METRONIDAZOLE [Concomitant]
     Active Substance: METRONIDAZOLE
     Dosage: UNK
     Route: 065

REACTIONS (11)
  - Cardio-respiratory arrest [Fatal]
  - Altered state of consciousness [Unknown]
  - Delirium [Unknown]
  - Intervertebral discitis [Unknown]
  - Muscle spasms [Unknown]
  - Oxygen saturation decreased [Unknown]
  - Heart rate decreased [Unknown]
  - Large intestine infection [Unknown]
  - Vomiting [Unknown]
  - Somnolence [Recovered/Resolved]
  - Drug interaction [Unknown]

NARRATIVE: CASE EVENT DATE: 20230128
